FAERS Safety Report 5629413-7 (Version None)
Quarter: 2008Q1

REPORT INFORMATION
  Report Type: 
  Country: None (occurrence: None)
  Receive Date: 20080215
  Receipt Date: 20080215
  Transmission Date: 20080703
  Serious: Yes (Hospitalization)
  Sender: FDA-Public Use
  Company Number: None

PATIENT
  Age: 17 Year
  Sex: Female
  Weight: 34.927 kg

DRUGS (1)
  1. VANCOMYCIN [Suspect]
     Indication: OSTEOMYELITIS
     Dosage: 660MG  Q12H  IV
     Route: 042
     Dates: start: 20080107, end: 20080130

REACTIONS (1)
  - STEVENS-JOHNSON SYNDROME [None]
